FAERS Safety Report 6730976-9 (Version None)
Quarter: 2010Q2

REPORT INFORMATION
  Report Type: 
  Country: None (occurrence: None)
  Receive Date: 20100518
  Receipt Date: 20100506
  Transmission Date: 20101027
  Serious: Yes (Hospitalization)
  Sender: FDA-Public Use
  Company Number: JP-WYE-H15028910

PATIENT
  Age: 71 Year
  Sex: Male

DRUGS (3)
  1. ARTANE [Suspect]
     Indication: PARKINSON'S DISEASE
     Dosage: UNKNOWN, THEN INCREASED GRADUALLY
     Dates: start: 19950101
  2. PERGOLIDE MESYLATE [Concomitant]
     Indication: PARKINSON'S DISEASE
     Dosage: UNKNOWN, THEN INCREASED GRADUALLY
     Dates: start: 19950101
  3. CARBIDOPA-LEVODOPA [Concomitant]
     Indication: PARKINSON'S DISEASE
     Dosage: UNKNOWN, THEN INCREASED GRADUALLY
     Dates: start: 19950101

REACTIONS (16)
  - AKINESIA [None]
  - ANHIDROSIS [None]
  - CONSTIPATION [None]
  - DYSPHAGIA [None]
  - HAEMANGIOMA OF LIVER [None]
  - HYPERREFLEXIA [None]
  - HYPERTHERMIA [None]
  - HYPOTHALAMO-PITUITARY DISORDER [None]
  - MUSCLE RIGIDITY [None]
  - NUCLEAR MAGNETIC RESONANCE IMAGING BRAIN ABNORMAL [None]
  - ORTHOSTATIC HYPOTENSION [None]
  - POLLAKIURIA [None]
  - POSTURAL REFLEX IMPAIRMENT [None]
  - POSTURE ABNORMAL [None]
  - TEMPERATURE REGULATION DISORDER [None]
  - TREMOR [None]
